FAERS Safety Report 6149577-9 (Version None)
Quarter: 2009Q2

REPORT INFORMATION
  Report Type: 
  Country: None (occurrence: None)
  Receive Date: 20090407
  Receipt Date: 20090319
  Transmission Date: 20091009
  Serious: Yes (Life-Threatening)
  Sender: FDA-Public Use
  Company Number: PVS17-19-MAR-2009

PATIENT
  Age: 25 Year
  Sex: Male
  Weight: 52 kg

DRUGS (6)
  1. SEROMYCIN [Suspect]
     Indication: PULMONARY TUBERCULOSIS
     Dosage: 750 MG, (1/D), ORAL
     Route: 048
     Dates: start: 20071031, end: 20080619
  2. ETHIONAMIDE (ETHIONAMIDE) [Concomitant]
  3. OFLOXACIN (OLFOXACIN) [Concomitant]
  4. PYRAZINAMIDE [Concomitant]
  5. ETHAMBUTOL (ETHAMBUTOL0 [Concomitant]
  6. KANMYCIN (KANAMYCIN0 [Concomitant]

REACTIONS (4)
  - CONFUSIONAL STATE [None]
  - DELUSION [None]
  - PSYCHOTIC DISORDER [None]
  - SUICIDAL IDEATION [None]
